FAERS Safety Report 17681993 (Version 1)
Quarter: 2020Q2

REPORT INFORMATION
  Report Type: Spontaneous
  Country: US (occurrence: US)
  Receive Date: 20200418
  Receipt Date: 20200418
  Transmission Date: 20200714
  Serious: Yes (Hospitalization, Other)
  Sender: FDA-Public Use
  Company Number: US-AUROBINDO-AUR-APL-2020-018693

PATIENT
  Age: 70 Year
  Sex: Male

DRUGS (2)
  1. ADALIMUMAB [Suspect]
     Active Substance: ADALIMUMAB
     Indication: RHEUMATOID ARTHRITIS
     Dosage: UNK
     Route: 065
  2. METHOTREXATE. [Suspect]
     Active Substance: METHOTREXATE
     Indication: RHEUMATOID ARTHRITIS
     Dosage: UNK
     Route: 065

REACTIONS (10)
  - Dyspnoea [Unknown]
  - Cholelithiasis [Unknown]
  - Abdominal pain [Unknown]
  - Fatigue [Unknown]
  - Liver abscess [Recovered/Resolved]
  - Hepatic vein thrombosis [Unknown]
  - Gastrointestinal oedema [Unknown]
  - Weight decreased [Unknown]
  - Ascites [Unknown]
  - Pyrexia [Unknown]
